FAERS Safety Report 6315165-4 (Version None)
Quarter: 2009Q3

REPORT INFORMATION
  Report Type: 
  Country: None (occurrence: None)
  Receive Date: 20090819
  Receipt Date: 20090811
  Transmission Date: 20100115
  Serious: No
  Sender: FDA-Public Use
  Company Number: US-BAYER-200915748NA

PATIENT
  Age: 53 Year
  Sex: Female

DRUGS (9)
  1. ULTRAVIST 370 [Suspect]
     Indication: COMPUTERISED TOMOGRAM THORAX
     Dosage: TOTAL DAILY DOSE: 100 ML  UNIT DOSE: 100 ML
     Route: 042
     Dates: start: 20090223, end: 20090223
  2. CARDIZEM [Concomitant]
  3. COUMADIN [Concomitant]
  4. DILAUDID [Concomitant]
  5. FUROSEMIDE [Concomitant]
  6. LORAZEPAM [Concomitant]
  7. NITROGLYCERIN [Concomitant]
  8. ZOFRAN [Concomitant]
  9. GASTROVIEW IN CRYSTAL LIGHT [Concomitant]

REACTIONS (3)
  - CHEST DISCOMFORT [None]
  - PRURITUS [None]
  - URTICARIA [None]
